FAERS Safety Report 23322874 (Version 4)
Quarter: 2024Q1

REPORT INFORMATION
  Report Type: Report from Study
  Country: US (occurrence: US)
  Receive Date: 20231220
  Receipt Date: 20240213
  Transmission Date: 20240409
  Serious: Yes (Hospitalization, Other)
  Sender: FDA-Public Use
  Company Number: US-ABBVIE-5547487

PATIENT
  Age: 74 Year
  Sex: Male
  Weight: 97.522 kg

DRUGS (6)
  1. SKYRIZI [Suspect]
     Active Substance: RISANKIZUMAB-RZAA
     Indication: Psoriasis
     Dosage: FORM STRENGTH: 150 MILLIGRAM
     Route: 058
     Dates: start: 20220923, end: 202309
  2. SKYRIZI [Suspect]
     Active Substance: RISANKIZUMAB-RZAA
     Dosage: FORM STRENGTH: 150 MILLIGRAM
     Route: 058
     Dates: start: 20231229
  3. UNSPECIFIED INGREDIENT [Suspect]
     Active Substance: UNSPECIFIED INGREDIENT
     Indication: Respiratory syncytial virus immunisation
     Dosage: DOSE FORM: INJECTION
     Route: 065
     Dates: start: 202310, end: 202310
  4. AMLODIPINE [Concomitant]
     Active Substance: AMLODIPINE BESYLATE
     Indication: Hypertension
     Dosage: FORM STRENGTH: 10 MILLIGRAM
  5. XARELTO [Concomitant]
     Active Substance: RIVAROXABAN
     Indication: Pulmonary embolism
     Dosage: FORM STRENGTH: 20 MILLIGRAM
  6. LOSARTAN [Concomitant]
     Active Substance: LOSARTAN
     Indication: Hypertension
     Dosage: FORM STRENGTH: 100 MILLIGRAM

REACTIONS (6)
  - Femoral neck fracture [Recovering/Resolving]
  - Respiratory syncytial virus infection [Recovered/Resolved]
  - Fall [Recovered/Resolved]
  - Insomnia [Recovered/Resolved]
  - Vaccine interaction [Not Recovered/Not Resolved]
  - Confusional state [Recovered/Resolved]

NARRATIVE: CASE EVENT DATE: 20231201
